FAERS Safety Report 8605051-9 (Version None)
Quarter: 2012Q3

REPORT INFORMATION
  Report Type: 
  Country: None (occurrence: None)
  Receive Date: 20120820
  Receipt Date: 20120811
  Transmission Date: 20120928
  Serious: No
  Sender: FDA-Public Use
  Company Number: US-BAYER-2012-083293

PATIENT
  Age: 38 Year
  Sex: Female
  Weight: 68.934 kg

DRUGS (4)
  1. ALEVE (CAPLET) [Suspect]
     Indication: NECK PAIN
  2. ALEVE (CAPLET) [Suspect]
     Indication: HEADACHE
     Dosage: 5 DF, UNK
     Route: 048
     Dates: start: 20120811
  3. PSEUDOEPHEDRINE [Concomitant]
  4. ALEVE (CAPLET) [Suspect]
     Indication: BACK PAIN
     Dosage: UNK DF, UNK
     Route: 048

REACTIONS (1)
  - PAIN [None]
